FAERS Safety Report 12037644 (Version 1)
Quarter: 2016Q1

REPORT INFORMATION
  Report Type: Spontaneous
  Country: US (occurrence: None)
  Receive Date: 20160205
  Receipt Date: 20160205
  Transmission Date: 20160526
  Serious: Yes (Hospitalization, Other)
  Sender: FDA-Public Use
  Company Number: None

PATIENT
  Age: 37 Year
  Sex: Female
  Weight: 72.12 kg

DRUGS (2)
  1. UNISOM WITH DOXYLAMINE [Concomitant]
  2. NUVARING [Suspect]
     Active Substance: ETHINYL ESTRADIOL\ETONOGESTREL
     Indication: CONTRACEPTION
     Dosage: NUVARING INSERT FOR 3WKS/MO VAGINAL
     Route: 067
     Dates: start: 200708, end: 201506

REACTIONS (4)
  - Pain [None]
  - Pelvic pain [None]
  - Endometriosis [None]
  - Asthenia [None]

NARRATIVE: CASE EVENT DATE: 20160101
